FAERS Safety Report 25871796 (Version 2)
Quarter: 2025Q4

REPORT INFORMATION
  Report Type: Spontaneous
  Country: CA (occurrence: CA)
  Receive Date: 20251001
  Receipt Date: 20251027
  Transmission Date: 20260117
  Serious: Yes (Other)
  Sender: ASTELLAS
  Company Number: CA-ASTELLAS-2025-AER-053490

PATIENT
  Age: 18 Year
  Sex: Female

DRUGS (12)
  1. TACROLIMUS [Suspect]
     Active Substance: TACROLIMUS
     Indication: Prophylaxis against graft versus host disease
     Dosage: IV OR ORAL, DOSE VARIABLE
     Route: 065
     Dates: start: 20181025
  2. TACROLIMUS [Suspect]
     Active Substance: TACROLIMUS
     Dosage: TAPER OF IMMUNOSUPPRESSION
     Route: 065
     Dates: end: 20190213
  3. CIDOFOVIR [Suspect]
     Active Substance: CIDOFOVIR
     Indication: Product used for unknown indication
     Route: 065
  4. METHYLPREDNISOLONE [Concomitant]
     Active Substance: METHYLPREDNISOLONE
     Indication: Prophylaxis against graft versus host disease
     Route: 065
     Dates: start: 20181025
  5. METHYLPREDNISOLONE [Concomitant]
     Active Substance: METHYLPREDNISOLONE
     Dosage: TAPER OF IMMUNOSUPPRESSION
     Route: 065
  6. METHOTREXATE [Concomitant]
     Active Substance: METHOTREXATE
     Indication: Prophylaxis against graft versus host disease
     Route: 065
     Dates: start: 20181025
  7. METHOTREXATE [Concomitant]
     Active Substance: METHOTREXATE
     Dosage: TAPER OF IMMUNOSUPPRESSION
     Route: 065
  8. FLUDARABINE [Concomitant]
     Active Substance: FLUDARABINE PHOSPHATE
     Indication: Allogenic stem cell transplantation
     Route: 065
     Dates: start: 2018
  9. TREOSULFAN [Concomitant]
     Active Substance: TREOSULFAN
     Indication: Allogenic stem cell transplantation
     Route: 065
     Dates: start: 2018
  10. CYTARABINE [Concomitant]
     Active Substance: CYTARABINE
     Indication: Allogenic stem cell transplantation
     Route: 065
     Dates: start: 2018
  11. ANTI-THYMOCYTE GLOBULIN (RABBIT) NOS [Concomitant]
     Active Substance: LAPINE T-LYMPHOCYTE IMMUNE GLOBULIN
     Indication: Prophylaxis against graft versus host disease
     Route: 065
     Dates: start: 20181025
  12. ANTI-THYMOCYTE GLOBULIN (RABBIT) NOS [Concomitant]
     Active Substance: LAPINE T-LYMPHOCYTE IMMUNE GLOBULIN
     Dosage: TAPER OF IMMUNOSUPPRESSION
     Route: 065

REACTIONS (8)
  - Adenovirus infection [Recovered/Resolved]
  - Epstein-Barr viraemia [Recovered/Resolved]
  - Varicella [Recovered/Resolved]
  - Acute kidney injury [Recovered/Resolved]
  - Toxicity to various agents [Recovered/Resolved]
  - Acute kidney injury [Recovered/Resolved]
  - Sepsis [Recovered/Resolved]
  - Off label use [Unknown]

NARRATIVE: CASE EVENT DATE: 20181025
